FAERS Safety Report 21243373 (Version 1)
Quarter: 2022Q3

REPORT INFORMATION
  Report Type: Report from Study
  Country: CA (occurrence: CA)
  Receive Date: 20220823
  Receipt Date: 20220823
  Transmission Date: 20221026
  Serious: Yes (Other)
  Sender: FDA-Public Use
  Company Number: CA-NOVARTISPH-PHHY2018CA176704

PATIENT
  Age: 53 Year
  Sex: Female

DRUGS (4)
  1. XOLAIR [Suspect]
     Active Substance: OMALIZUMAB
     Indication: Chronic spontaneous urticaria
     Dosage: 300 MG, EVERY 4 WEEKS
     Route: 058
     Dates: start: 20181129
  2. XOLAIR [Suspect]
     Active Substance: OMALIZUMAB
     Dosage: 300 MG, EVERY 4 WEEKS
     Route: 058
     Dates: start: 20191112
  3. IRBESARTAN [Suspect]
     Active Substance: IRBESARTAN
     Indication: Hypertension
     Dosage: 1 DOSAGE FORM
     Route: 065
  4. SPIRONOLACTONE [Concomitant]
     Active Substance: SPIRONOLACTONE
     Indication: Blood pressure abnormal
     Dosage: UNK
     Route: 048
     Dates: start: 202112

REACTIONS (19)
  - Diabetes mellitus [Unknown]
  - Fatigue [Unknown]
  - Pruritus [Recovered/Resolved]
  - Oropharyngeal pain [Unknown]
  - Somnolence [Unknown]
  - Weight decreased [Unknown]
  - Headache [Unknown]
  - Urticaria [Recovered/Resolved]
  - Pain in extremity [Unknown]
  - COVID-19 [Unknown]
  - Cough [Unknown]
  - Rhinorrhoea [Unknown]
  - Herpes zoster [Unknown]
  - Axillary pain [Unknown]
  - Chest pain [Unknown]
  - Breast pain [Unknown]
  - Blister [Unknown]
  - Pigmentation disorder [Unknown]
  - Sensitive skin [Unknown]

NARRATIVE: CASE EVENT DATE: 20181130
